FAERS Safety Report 10505219 (Version 1)
Quarter: 2014Q4

REPORT INFORMATION
  Report Type: Spontaneous
  Country: US (occurrence: US)
  Receive Date: 20141008
  Receipt Date: 20141008
  Transmission Date: 20150528
  Serious: Yes (Other)
  Sender: FDA-Public Use
  Company Number: CHPA2014US013575

PATIENT
  Sex: Female

DRUGS (1)
  1. GAS-X [Suspect]
     Active Substance: DIMETHICONE
     Indication: PRODUCT USED FOR UNKNOWN INDICATION
     Dosage: WENT TO 9 INSTEAD OF 8
     Route: 048

REACTIONS (4)
  - Nervousness [Recovered/Resolved]
  - Incorrect dose administered [Unknown]
  - Flushing [Recovered/Resolved]
  - Parkinson^s disease [Unknown]
